FAERS Safety Report 5022807-2 (Version None)
Quarter: 2006Q2

REPORT INFORMATION
  Report Type: 
  Country: None (occurrence: None)
  Receive Date: 20060426
  Receipt Date: 20060127
  Transmission Date: 20061013
  Serious: Yes (Other)
  Sender: FDA-Public Use
  Company Number: 2005165866

PATIENT
  Age: 53 Year
  Sex: Female
  Weight: 63.5036 kg

DRUGS (7)
  1. LYRICA [Suspect]
     Indication: NEURALGIA
     Dosage: 300 MG (150 MG, 2 IN 1 D)
     Dates: start: 20050101, end: 20051130
  2. MORPHINE [Concomitant]
  3. ZANAFLEX [Concomitant]
  4. ROBAXIN [Concomitant]
  5. MAXZIDE [Concomitant]
  6. AMBIEN [Concomitant]
  7. HALCION [Concomitant]

REACTIONS (9)
  - ADVERSE EVENT [None]
  - ARTHRALGIA [None]
  - BURNING SENSATION [None]
  - CARPAL TUNNEL SYNDROME [None]
  - EUPHORIC MOOD [None]
  - HYPOAESTHESIA [None]
  - PAIN [None]
  - PARAESTHESIA [None]
  - SWELLING [None]
